FAERS Safety Report 5236516-8 (Version None)
Quarter: 2007Q1

REPORT INFORMATION
  Report Type: 
  Country: None (occurrence: None)
  Receive Date: 20070208
  Receipt Date: 20070127
  Transmission Date: 20070707
  Serious: Yes (Other)
  Sender: FDA-Public Use
  Company Number: 2007305304

PATIENT
  Sex: Female

DRUGS (1)
  1. NICORETTE [Suspect]
     Indication: SMOKING CESSATION THERAPY
     Dosage: 15MG (15 MG), TRANSDERMAL
     Route: 062

REACTIONS (3)
  - DIZZINESS [None]
  - FATIGUE [None]
  - SYNCOPE [None]
